FAERS Safety Report 17478301 (Version 1)
Quarter: 2020Q1

REPORT INFORMATION
  Report Type: Spontaneous
  Country: GB (occurrence: GB)
  Receive Date: 20200228
  Receipt Date: 20200228
  Transmission Date: 20200409
  Serious: No
  Sender: FDA-Public Use
  Company Number: GB-JNJFOC-20191110690

PATIENT
  Age: 42 Year
  Sex: Female
  Weight: 90 kg

DRUGS (3)
  1. HUMIRA [Suspect]
     Active Substance: ADALIMUMAB
     Indication: PSORIASIS
     Route: 058
     Dates: start: 2011, end: 2014
  2. STELARA [Suspect]
     Active Substance: USTEKINUMAB
     Indication: PRODUCT USED FOR UNKNOWN INDICATION
     Route: 058
     Dates: start: 2014
  3. STELARA [Suspect]
     Active Substance: USTEKINUMAB
     Route: 058

REACTIONS (7)
  - Therapeutic response decreased [Unknown]
  - Fibrosis [Unknown]
  - Body mass index abnormal [Unknown]
  - Hepatic function abnormal [Recovered/Resolved]
  - Psoriasis [Recovering/Resolving]
  - Skin disorder [Recovering/Resolving]
  - Nonalcoholic fatty liver disease [Unknown]

NARRATIVE: CASE EVENT DATE: 2011
